FAERS Safety Report 5060929-0 (Version None)
Quarter: 2006Q3

REPORT INFORMATION
  Report Type: 
  Country: None (occurrence: None)
  Receive Date: 20060721
  Receipt Date: 20060523
  Transmission Date: 20061208
  Serious: Yes (Hospitalization)
  Sender: FDA-Public Use
  Company Number: 20062981

PATIENT
  Sex: Male

DRUGS (1)
  1. LIORESAL [Suspect]
     Indication: MUSCLE SPASTICITY
     Dosage: MCG, DAILY, INTRATHECAL
     Route: 037

REACTIONS (16)
  - BLOOD SODIUM DECREASED [None]
  - CONFUSIONAL STATE [None]
  - DELUSION [None]
  - DRUG CLEARANCE DECREASED [None]
  - DRUG WITHDRAWAL SYNDROME [None]
  - EMPYEMA [None]
  - GRAND MAL CONVULSION [None]
  - HALLUCINATION [None]
  - LOSS OF CONSCIOUSNESS [None]
  - OVERDOSE [None]
  - PNEUMONIA [None]
  - RENAL FAILURE [None]
  - RESPIRATORY DISORDER [None]
  - RESPIRATORY DISTRESS [None]
  - SEDATION [None]
  - SEPSIS [None]
